FAERS Safety Report 13818710 (Version 2)
Quarter: 2018Q1

REPORT INFORMATION
  Report Type: Report from Study
  Country: US (occurrence: US)
  Receive Date: 20170731
  Receipt Date: 20180201
  Transmission Date: 20180508
  Serious: No
  Sender: FDA-Public Use
  Company Number: US-EXELIXIS-CABO-17008943

PATIENT
  Sex: Female

DRUGS (4)
  1. CABOMETYX [Suspect]
     Active Substance: CABOZANTINIB S-MALATE
     Indication: RENAL CANCER
     Dosage: 40 MG, QD
     Route: 048
     Dates: start: 20161013, end: 201612
  2. XYZAL [Concomitant]
     Active Substance: LEVOCETIRIZINE DIHYDROCHLORIDE
  3. CABOMETYX [Suspect]
     Active Substance: CABOZANTINIB S-MALATE
     Dosage: 60 MG, ALTERNATE WITH 40MG IF S/E
     Dates: start: 201701
  4. BENNET [Concomitant]

REACTIONS (5)
  - Sinus congestion [Unknown]
  - Eye swelling [Unknown]
  - Dyspepsia [Unknown]
  - Eye irritation [Unknown]
  - Epistaxis [Unknown]
